FAERS Safety Report 21762314 (Version 1)
Quarter: 2022Q4

REPORT INFORMATION
  Report Type: Spontaneous
  Country: None (occurrence: US)
  Receive Date: 20221221
  Receipt Date: 20221221
  Transmission Date: 20230112
  Serious: No
  Sender: FDA-Public Use
  Company Number: US-GREER Laboratories, Inc.-2136056

PATIENT
  Age: 44 Year
  Sex: Female
  Weight: 104.55 kg

DRUGS (31)
  1. JOHNSON GRASS [Suspect]
     Active Substance: SORGHUM HALEPENSE POLLEN
     Indication: Rhinitis allergic
     Dates: start: 20221107, end: 20221114
  2. ANTHOXANTHUM ODORATUM POLLEN\DACTYLIS GLOMERATA POLLEN\PHLEUM PRATENSE [Suspect]
     Active Substance: ANTHOXANTHUM ODORATUM POLLEN\DACTYLIS GLOMERATA POLLEN\PHLEUM PRATENSE POLLEN
     Dates: start: 20221107, end: 20221114
  3. GOLDENROD POLLEN [Suspect]
     Active Substance: SOLIDAGO CANADENSIS POLLEN
     Dates: start: 20221107, end: 20221114
  4. SHORT AND GIANT RAGWEED POLLEN MIX [Suspect]
     Active Substance: AMBROSIA ARTEMISIIFOLIA POLLEN\AMBROSIA TRIFIDA POLLEN
     Dates: start: 20221107, end: 20221114
  5. AMARANTHUS HYBRIDUS POLLEN\AMARANTHUS PALMERI POLLEN\AMARANTHUS RETROF [Suspect]
     Active Substance: AMARANTHUS HYBRIDUS POLLEN\AMARANTHUS PALMERI POLLEN\AMARANTHUS RETROFLEXUS POLLEN
     Dates: start: 20221107, end: 20221114
  6. 2 MAPLE POLLEN MIX [Suspect]
     Active Substance: ACER RUBRUM POLLEN\ACER SACCHARUM POLLEN
     Dates: start: 20221107, end: 20221114
  7. 2 MAPLE POLLEN MIX [Suspect]
     Active Substance: ACER RUBRUM POLLEN\ACER SACCHARUM POLLEN
     Dates: start: 20221107, end: 20221114
  8. EASTERN OAK POLLEN MIX [Suspect]
     Active Substance: QUERCUS ALBA POLLEN\QUERCUS RUBRA POLLEN\QUERCUS VELUTINA POLLEN
     Dates: start: 20221107, end: 20221114
  9. RED CEDAR POLLEN [Suspect]
     Active Substance: JUNIPERUS VIRGINIANA POLLEN
     Dates: start: 20221107, end: 20221114
  10. BIRCH POLLEN MIX [Suspect]
     Active Substance: BETULA LENTA POLLEN\BETULA NIGRA POLLEN\BETULA POPULIFOLIA POLLEN
     Dates: start: 20221107, end: 20221114
  11. BLACK LOCUST BLOSSOM [Suspect]
     Active Substance: ROBINIA PSEUDOACACIA POLLEN
     Dates: start: 20221107, end: 20221114
  12. ALTERNARIA/HORMODENDRUM MIX [Suspect]
     Active Substance: ALTERNARIA ALTERNATA\ASPERGILLUS FUMIGATUS
     Dates: start: 20221107, end: 20221114
  13. ASPERGILLUS MIX [Suspect]
     Active Substance: ASPERGILLUS FLAVUS\ASPERGILLUS FUMIGATUS\ASPERGILLUS NIDULANS\ASPERGILLUS NIGER VAR. NIGER\EUROTIUM
     Dates: start: 20221107, end: 20221114
  14. CLADOSPORIUM HERBARUM [Suspect]
     Active Substance: CLADOSPORIUM HERBARUM
     Dates: start: 20221107, end: 20221114
  15. PENICILLIUM MIX [Suspect]
     Active Substance: PENICILLIUM CAMEMBERTI\PENICILLIUM CHRYSOGENUM VAR. CHRYSOGENUM\PENICILLIUM DIGITATUM\PENICILLIUM RO
     Dates: start: 20221107, end: 20221114
  16. STANDARDIZED MITE, DERMATOPHAGOIDES PTERONYSSINUS [Suspect]
     Active Substance: DERMATOPHAGOIDES PTERONYSSINUS
     Dates: start: 20221107, end: 20221114
  17. 2 COCKROACH MIX [Suspect]
     Active Substance: BLATELLA GERMANICA\PERIPLANETA AMERICANA
     Dates: start: 20221107, end: 20221114
  18. DOG EPITHELIA [Suspect]
     Active Substance: CANIS LUPUS FAMILIARIS SKIN
     Dates: start: 20221107, end: 20221114
  19. STANDARDIZED CAT HAIR [Suspect]
     Active Substance: FELIS CATUS HAIR
     Dates: start: 20221107, end: 20221114
  20. VENTOLIN HFA [Concomitant]
     Active Substance: ALBUTEROL SULFATE
  21. FAMOTIDINE [Concomitant]
     Active Substance: FAMOTIDINE
  22. LORATADINE [Concomitant]
     Active Substance: LORATADINE
  23. DICYCLOMINE [Concomitant]
     Active Substance: DICYCLOMINE HYDROCHLORIDE
  24. ENALAPRIL MALEATE [Concomitant]
     Active Substance: ENALAPRIL MALEATE
  25. FLUOXETINE [Concomitant]
     Active Substance: FLUOXETINE HYDROCHLORIDE
  26. HYDROXYZINE [Concomitant]
     Active Substance: HYDROXYZINE HYDROCHLORIDE
  27. MONTELUKAST [Concomitant]
     Active Substance: MONTELUKAST SODIUM
  28. PANTOPRAZOLE SODIUM [Concomitant]
     Active Substance: PANTOPRAZOLE SODIUM
  29. TIZANIDINE [Concomitant]
     Active Substance: TIZANIDINE
  30. TOPIRAMATE [Concomitant]
     Active Substance: TOPIRAMATE
  31. ULTRAM [Concomitant]
     Active Substance: TRAMADOL HYDROCHLORIDE

REACTIONS (4)
  - Chest discomfort [Recovered/Resolved with Sequelae]
  - Wheezing [Recovered/Resolved with Sequelae]
  - Chest discomfort [Recovered/Resolved with Sequelae]
  - Wheezing [Recovered/Resolved with Sequelae]

NARRATIVE: CASE EVENT DATE: 20221107
